FAERS Safety Report 18362941 (Version 3)
Quarter: 2020Q4

REPORT INFORMATION
  Report Type: Spontaneous
  Country: US (occurrence: US)
  Receive Date: 20201008
  Receipt Date: 20201014
  Transmission Date: 20210114
  Serious: Yes (Death, Life-Threatening, Other)
  Sender: FDA-Public Use
  Company Number: US-PFIZER INC-2020385644

PATIENT
  Age: 41 Year
  Sex: Female

DRUGS (19)
  1. SALINE [SODIUM CHLORIDE] [Concomitant]
     Active Substance: SODIUM CHLORIDE
     Dosage: 510 ML, CYCLIC (ALTEPLASE 10 MG IN 510 ML OF NORMAL SALINE WAS ADMINISTERED AS A CONTINUOUS INFUSION
     Dates: start: 201811, end: 201811
  2. HEPARIN SODIUM. [Suspect]
     Active Substance: HEPARIN SODIUM
     Dosage: 1600 IU, CYCLIC (FREQ:1 H, INFUSION)
     Route: 041
     Dates: start: 20181114, end: 20181114
  3. DROSPIRENONE [Suspect]
     Active Substance: DROSPIRENONE
     Indication: ORAL CONTRACEPTION
     Dosage: UNK, 1X/DAY
     Route: 048
  4. HEPARIN SODIUM. [Suspect]
     Active Substance: HEPARIN SODIUM
     Dosage: 800 IU, CYCLIC (FREQ:1 H, INFUSION)
     Route: 041
     Dates: start: 20181111, end: 20181111
  5. HEPARIN SODIUM. [Suspect]
     Active Substance: HEPARIN SODIUM
     Dosage: 1450 IU, CYCLIC (FREQ:1 H, INFUSION)
     Route: 041
     Dates: start: 20181114, end: 20181117
  6. HEPARIN SODIUM. [Suspect]
     Active Substance: HEPARIN SODIUM
     Indication: CEREBRAL VENOUS SINUS THROMBOSIS
     Dosage: 1600 IU, CYCLIC (FREQ:1 H; INFUSION)
     Route: 041
     Dates: start: 20181111, end: 20181112
  7. HEPARIN SODIUM. [Suspect]
     Active Substance: HEPARIN SODIUM
     Dosage: 1200 IU, CYCLIC (FREQ:1 H, INFUSION)
     Route: 041
     Dates: start: 20181110, end: 20181110
  8. HEPARIN SODIUM. [Suspect]
     Active Substance: HEPARIN SODIUM
     Dosage: 800 IU, CYCLIC (FREQ:1 H, INFUSION)
     Route: 041
     Dates: start: 20181112, end: 20181112
  9. HEPARIN SODIUM. [Suspect]
     Active Substance: HEPARIN SODIUM
     Dosage: 1050 IU, CYCLIC (FREQ:1 H, INFUSION)
     Route: 041
     Dates: start: 20181112, end: 20181113
  10. HEPARIN SODIUM. [Suspect]
     Active Substance: HEPARIN SODIUM
     Dosage: 1200 IU, CYCLIC (FREQ:1 H, INFUSION)
     Route: 041
     Dates: start: 20181111, end: 20181111
  11. ETHINYLESTRADIOL [Suspect]
     Active Substance: ETHINYL ESTRADIOL
     Indication: ORAL CONTRACEPTION
     Dosage: UNK, 1X/DAY
     Route: 048
  12. HEPARIN SODIUM. [Suspect]
     Active Substance: HEPARIN SODIUM
     Dosage: 1200 IU, CYCLIC (FREQ:1 H; INFUSION)
     Route: 041
     Dates: start: 20181109, end: 20181110
  13. HEPARIN SODIUM. [Suspect]
     Active Substance: HEPARIN SODIUM
     Dosage: 800 IU, CYCLIC (FREQ:1 H, INFUSION)
     Route: 041
     Dates: start: 20181112, end: 20181112
  14. HEPARIN SODIUM. [Suspect]
     Active Substance: HEPARIN SODIUM
     Dosage: 1600 IU, CYCLIC (FREQ:1 H, INFUSION)
     Route: 041
     Dates: start: 20181117, end: 20181118
  15. ALTEPLASE. [Suspect]
     Active Substance: ALTEPLASE
     Indication: CEREBRAL VENOUS SINUS THROMBOSIS
     Dosage: 1 MG, CYCLIC (FREQ:1 H;ALTEPLASE 10 MG IN 510 ML OF NORMAL SALINE WAS ADMINISTERED AS A CONTINUOUS I
     Dates: start: 201811, end: 201811
  16. ALTEPLASE. [Suspect]
     Active Substance: ALTEPLASE
     Dosage: 1 MG, 1X/DAY  (TOTAL OF 3 DOSES)
     Dates: start: 201811, end: 201811
  17. HEPARIN SODIUM. [Suspect]
     Active Substance: HEPARIN SODIUM
     Dosage: 1300 IU, CYCLIC (FREQ:1 H, INFUSION)
     Route: 041
     Dates: start: 20181113, end: 20181113
  18. HEPARIN SODIUM. [Suspect]
     Active Substance: HEPARIN SODIUM
     Dosage: 1450 IU, CYCLIC (FREQ:1 H, INFUSION)
     Route: 041
     Dates: start: 20181113, end: 20181114
  19. HEPARIN SODIUM. [Suspect]
     Active Substance: HEPARIN SODIUM
     Dosage: 1300 IU, CYCLIC (FREQ:1 H, INFUSION)
     Route: 041
     Dates: start: 20181113, end: 20181113

REACTIONS (2)
  - Intraventricular haemorrhage [Fatal]
  - Condition aggravated [Fatal]

NARRATIVE: CASE EVENT DATE: 201811
